FAERS Safety Report 5162959-7 (Version None)
Quarter: 2006Q4

REPORT INFORMATION
  Report Type: 
  Country: None (occurrence: None)
  Receive Date: 20061201
  Receipt Date: 20061127
  Transmission Date: 20070319
  Serious: Yes (Hospitalization)
  Sender: FDA-Public Use
  Company Number: US-BRISTOL-MYERS SQUIBB COMPANY-13588827

PATIENT
  Age: 69 Year
  Sex: Male

DRUGS (6)
  1. CETUXIMAB [Suspect]
     Indication: NON-SMALL CELL LUNG CANCER METASTATIC
     Route: 042
     Dates: start: 20060919, end: 20060919
  2. TAXOL [Suspect]
     Indication: NON-SMALL CELL LUNG CANCER METASTATIC
     Route: 042
     Dates: start: 20060912, end: 20060912
  3. CARBOPLATIN [Suspect]
     Indication: NON-SMALL CELL LUNG CANCER METASTATIC
     Route: 042
     Dates: start: 20060912, end: 20060912
  4. LIPITOR [Concomitant]
     Dates: start: 20060816
  5. ALBUTEROL [Concomitant]
     Dates: start: 20060816
  6. LORAZEPAM [Concomitant]
     Dates: start: 20060816

REACTIONS (1)
  - DEHYDRATION [None]
